FAERS Safety Report 5021768-X (Version None)
Quarter: 2006Q2

REPORT INFORMATION
  Report Type: 
  Country: None (occurrence: None)
  Receive Date: 20060605
  Receipt Date: 20060522
  Transmission Date: 20061013
  Serious: Yes (Other)
  Sender: FDA-Public Use
  Company Number: 2006043552

PATIENT
  Age: 36 Year
  Sex: Female
  Weight: 64.4108 kg

DRUGS (13)
  1. VFEND [Suspect]
     Indication: CANDIDIASIS
     Dosage: 200 MG (200 MG 1 IN 1 D)
     Dates: start: 20060125
  2. FLAGYL [Suspect]
     Indication: PROPHYLAXIS
     Dates: start: 20060329
  3. AMBIEN [Suspect]
     Indication: INSOMNIA
     Dates: start: 20060101, end: 20060227
  4. GABITRIL [Suspect]
     Indication: INSOMNIA
     Dates: end: 20060101
  5. PENICILLIN VK [Suspect]
     Indication: ILL-DEFINED DISORDER
     Dosage: 500 MG (250 MG 2 IN 1D )ORAL
     Route: 048
     Dates: start: 20060227
  6. VANCOMYCIN [Suspect]
     Indication: ILL-DEFINED DISORDER
     Dosage: 500 MG (125 MG 4 IN 1 D) ORAL
     Route: 048
  7. PROVIGIL [Concomitant]
  8. MOTRIN [Concomitant]
  9. NORTRIPTYLINE HCL [Concomitant]
  10. CONTRACEPTIVE                         (CONTRACEPTIVE) [Concomitant]
  11. NUTRITIONAL SUPPLEMENT                 (GENERAL NUTRIENTS) [Concomitant]
  12. ACIDOPHILUS                             (LACTOBACILLUS ACIDOPHILUS) [Concomitant]
  13. YASMIN [Concomitant]

REACTIONS (58)
  - ABDOMINAL DISTENSION [None]
  - ARTHRALGIA [None]
  - BLOOD PRESSURE DIASTOLIC INCREASED [None]
  - BREATH SOUNDS ABNORMAL [None]
  - CARDIAC MURMUR [None]
  - CEREBRAL DISORDER [None]
  - CHROMATOPSIA [None]
  - CHRONIC TONSILLITIS [None]
  - CONDITION AGGRAVATED [None]
  - CONFUSIONAL STATE [None]
  - CRYING [None]
  - CULTURE STOOL POSITIVE [None]
  - DEPRESSION [None]
  - DIARRHOEA [None]
  - DISTURBANCE IN ATTENTION [None]
  - DRUG INEFFECTIVE [None]
  - DRUG INTERACTION [None]
  - FAECAL FAT INCREASED [None]
  - FATIGUE [None]
  - FEELING DRUNK [None]
  - FLATULENCE [None]
  - FOOD ALLERGY [None]
  - FUNGAL INFECTION [None]
  - GASTROINTESTINAL CANDIDIASIS [None]
  - GASTROINTESTINAL PAIN [None]
  - GASTROOESOPHAGEAL REFLUX DISEASE [None]
  - GRAVITATIONAL OEDEMA [None]
  - HEADACHE [None]
  - HYPERSOMNIA [None]
  - INFLUENZA LIKE ILLNESS [None]
  - INSOMNIA [None]
  - INTESTINAL FUNCTIONAL DISORDER [None]
  - IRRITABILITY [None]
  - JOINT CREPITATION [None]
  - JOINT EFFUSION [None]
  - MIGRAINE [None]
  - MOOD ALTERED [None]
  - MOOD SWINGS [None]
  - MUCOPOLYSACCHARIDOSIS [None]
  - MUSCULAR WEAKNESS [None]
  - MUSCULOSKELETAL STIFFNESS [None]
  - MYALGIA [None]
  - MYOPATHY [None]
  - NAUSEA [None]
  - NECK PAIN [None]
  - NERVOUSNESS [None]
  - NIGHTMARE [None]
  - PAIN IN EXTREMITY [None]
  - PREMENSTRUAL SYNDROME [None]
  - REFUSAL OF TREATMENT BY PATIENT [None]
  - SALMONELLOSIS [None]
  - STRESS [None]
  - SYNOVITIS [None]
  - TEARFULNESS [None]
  - TENDONITIS [None]
  - TREMOR [None]
  - VISION BLURRED [None]
  - VOMITING [None]
